FAERS Safety Report 8796240 (Version 1)
Quarter: 2012Q4

REPORT INFORMATION
  Report Type: 
  Country: US (occurrence: US)
  Receive Date: 20120919
  Receipt Date: 20120919
  Transmission Date: 20130627
  Serious: No
  Sender: FDA-Public Use
  Company Number: US-009507513-1209USA007078

PATIENT

DRUGS (1)
  1. IMPLANON [Suspect]
     Indication: CONTRACEPTION
     Dosage: Every 3 years
     Route: 058

REACTIONS (4)
  - Muscle spasms [Unknown]
  - Back pain [Unknown]
  - Pelvic pain [Unknown]
  - Incorrect drug administration duration [Unknown]
